FAERS Safety Report 8966389 (Version 5)
Quarter: 2013Q2

REPORT INFORMATION
  Report Type: Spontaneous
  Country: US (occurrence: US)
  Receive Date: 20121214
  Receipt Date: 20130607
  Transmission Date: 20140414
  Serious: Yes (Hospitalization)
  Sender: FDA-Public Use
  Company Number: US-GLAXOSMITHKLINE-A1005302A

PATIENT
  Age: 53 Year
  Sex: Male
  Weight: 93.6 kg

DRUGS (4)
  1. AVANDAMET [Suspect]
     Indication: DIABETES MELLITUS
     Route: 048
     Dates: start: 200402, end: 20110511
  2. AVANDIA [Suspect]
     Indication: DIABETES MELLITUS
     Dosage: 2MG TWICE PER DAY
     Route: 048
     Dates: start: 200505, end: 200608
  3. ROSIGLITAZONE MALEATE [Suspect]
     Indication: DIABETES MELLITUS
     Route: 065
     Dates: start: 20060208, end: 20060712
  4. ROSIGLITAZONE MALEATE + METFORMIN HYDROCHLORIDE [Suspect]
     Indication: DIABETES MELLITUS
     Route: 065
     Dates: start: 20060815, end: 20101230

REACTIONS (2)
  - Acute myocardial infarction [Recovering/Resolving]
  - Coronary artery occlusion [None]
